FAERS Safety Report 15458283 (Version 1)
Quarter: 2018Q3

REPORT INFORMATION
  Report Type: Spontaneous
  Country: US (occurrence: US)
  Receive Date: 20180928
  Receipt Date: 20180928
  Transmission Date: 20181010
  Serious: Yes (Other)
  Sender: FDA-Public Use
  Company Number: None

PATIENT
  Age: 76 Year
  Sex: Male
  Weight: 68.95 kg

DRUGS (20)
  1. MECLIZINE HCL [Suspect]
     Active Substance: MECLIZINE HYDROCHLORIDE
     Indication: BALANCE DISORDER
     Dosage: ?          QUANTITY:3 ;?
     Route: 048
     Dates: start: 20180730, end: 20180812
  2. TYLENOL [Concomitant]
     Active Substance: ACETAMINOPHEN
  3. PROBIOTIC (S. BOULARDII) [Concomitant]
  4. ELIQUIS [Concomitant]
     Active Substance: APIXABAN
  5. MECLIZINE HCL [Suspect]
     Active Substance: MECLIZINE HYDROCHLORIDE
     Indication: VERTIGO
     Dosage: ?          QUANTITY:3 ;?
     Route: 048
     Dates: start: 20180730, end: 20180812
  6. DOCUSATE SODIUM. [Concomitant]
     Active Substance: DOCUSATE SODIUM
  7. CRANBERRY EXTRACT [Concomitant]
     Active Substance: CRANBERRY JUICE
  8. BISACODYL. [Concomitant]
     Active Substance: BISACODYL
  9. AMLODIPINE [Concomitant]
     Active Substance: AMLODIPINE BESYLATE
  10. CLONIDINE HCL [Concomitant]
     Active Substance: CLONIDINE HYDROCHLORIDE
  11. FLEET ENEMA [Concomitant]
     Active Substance: SODIUM PHOSPHATE, DIBASIC\SODIUM PHOSPHATE, MONOBASIC
  12. ALUMINUM?MAG HYDROXIDE?SIMETHICONE [Concomitant]
  13. PROVENTIL HFA [Concomitant]
     Active Substance: ALBUTEROL SULFATE
  14. ZOFRAN [Concomitant]
     Active Substance: ONDANSETRON HYDROCHLORIDE
  15. MULTIVITAMIN WITH MINERALS [Concomitant]
     Active Substance: MINERALS\VITAMINS
  16. SPIRIVA [Concomitant]
     Active Substance: TIOTROPIUM BROMIDE MONOHYDRATE
  17. LACTULOSE. [Concomitant]
     Active Substance: LACTULOSE
  18. POLYETHYLENE GLYCOL [Concomitant]
     Active Substance: POLYETHYLENE GLYCOLS
  19. HYDROCORTISONE. [Concomitant]
     Active Substance: HYDROCORTISONE
  20. AMDIODARONE [Concomitant]
     Active Substance: AMIODARONE

REACTIONS (4)
  - Balance disorder [None]
  - Peripheral swelling [None]
  - Alopecia [None]
  - Dizziness [None]

NARRATIVE: CASE EVENT DATE: 20180905
